APPROVED DRUG PRODUCT: QUINORA
Active Ingredient: QUINIDINE SULFATE
Strength: 300MG
Dosage Form/Route: TABLET;ORAL
Application: A085222 | Product #001
Applicant: SCHERING CORP
Approved: Approved Prior to Jan 1, 1982 | RLD: Yes | RS: No | Type: DISCN